FAERS Safety Report 4506611-7 (Version None)
Quarter: 2004Q4

REPORT INFORMATION
  Report Type: 
  Country: None (occurrence: None)
  Receive Date: 20041122
  Receipt Date: 20041116
  Transmission Date: 20050328
  Serious: Yes (Hospitalization)
  Sender: FDA-Public Use
  Company Number: FR-BRISTOL-MYERS SQUIBB COMPANY-12768008

PATIENT
  Age: 75 Year
  Sex: Male

DRUGS (2)
  1. SINEMET [Suspect]
     Indication: PARKINSON'S DISEASE
     Dosage: DOSE VALUE:  100 MG AT 2.5 TAB/D, AND 200 MG AT 2 TABS/D.
     Route: 048
     Dates: start: 20010701
  2. COMTAN [Concomitant]
     Dates: start: 20010707

REACTIONS (3)
  - FALL [None]
  - ORTHOSTATIC HYPOTENSION [None]
  - VERTIGO [None]
